FAERS Safety Report 6944538-1 (Version None)
Quarter: 2010Q3

REPORT INFORMATION
  Report Type: 
  Country: None (occurrence: None)
  Receive Date: 20100827
  Receipt Date: 20100819
  Transmission Date: 20110219
  Serious: Yes (Hospitalization)
  Sender: FDA-Public Use
  Company Number: JO-JNJFOC-20100801173

PATIENT
  Sex: Male
  Weight: 81 kg

DRUGS (3)
  1. PALIPERIDONE PALMITATE [Suspect]
     Indication: SCHIZOPHRENIA
     Route: 030
  2. PALIPERIDONE PALMITATE [Suspect]
     Route: 030
  3. ZOLPIDEM [Concomitant]
     Indication: INSOMNIA
     Route: 048

REACTIONS (1)
  - FOREIGN BODY [None]
